FAERS Safety Report 18639894 (Version 1)
Quarter: 2020Q4

REPORT INFORMATION
  Report Type: Spontaneous
  Country: US (occurrence: US)
  Receive Date: 20201220
  Receipt Date: 20201220
  Transmission Date: 20210114
  Serious: Yes (Disabling)
  Sender: FDA-Public Use
  Company Number: US-PACIRA-201900393

PATIENT
  Age: 81 Year
  Sex: Female
  Weight: 59 kg

DRUGS (2)
  1. BUPIVACAINE. [Suspect]
     Active Substance: BUPIVACAINE
     Indication: KNEE ARTHROPLASTY
     Dosage: 30 ML WITH SODIUM CHLORIDE 0.9%
     Route: 065
     Dates: start: 20191105, end: 20191105
  2. EXPAREL [Suspect]
     Active Substance: BUPIVACAINE
     Indication: NERVE BLOCK
     Dosage: 20 ML
     Route: 052
     Dates: start: 20191105, end: 20191105

REACTIONS (2)
  - Product use in unapproved indication [Recovered/Resolved]
  - Peroneal nerve palsy [Recovering/Resolving]
